FAERS Safety Report 18344929 (Version 1)
Quarter: 2020Q4

REPORT INFORMATION
  Report Type: Spontaneous
  Country: CH (occurrence: CH)
  Receive Date: 20201005
  Receipt Date: 20201005
  Transmission Date: 20210114
  Serious: Yes (Death)
  Sender: FDA-Public Use
  Company Number: NVSC2020CH267502

PATIENT
  Age: 58 Year
  Sex: Male

DRUGS (9)
  1. HERCEPTIN [Suspect]
     Active Substance: TRASTUZUMAB
     Dosage: 520 MG, CYCLIC
     Route: 041
     Dates: start: 20200831, end: 20200831
  2. OXALIPLATIN. [Suspect]
     Active Substance: OXALIPLATIN
     Indication: NEOPLASM PROGRESSION
     Dosage: 170 MG, CYCLIC
     Route: 041
     Dates: start: 20200831, end: 20200831
  3. OXALIPLATIN. [Suspect]
     Active Substance: OXALIPLATIN
     Dosage: UNK UNK, CYCLIC
     Route: 041
     Dates: start: 201801, end: 201806
  4. HERCEPTIN [Suspect]
     Active Substance: TRASTUZUMAB
     Dosage: 540 MG, CYCLIC
     Route: 041
     Dates: start: 201807, end: 20200807
  5. FLUOROURACILE ACCORD [Suspect]
     Active Substance: FLUOROURACIL
     Dosage: UNK UNK, CYCLIC
     Route: 041
     Dates: start: 201801, end: 201806
  6. DOCETAXEL TEVA [Suspect]
     Active Substance: DOCETAXEL
     Dosage: UNK UNK, CYCLIC
     Route: 041
     Dates: start: 201801, end: 201806
  7. HERCEPTIN [Suspect]
     Active Substance: TRASTUZUMAB
     Indication: ADENOCARCINOMA GASTRIC
     Dosage: UNK UNK, CYCLIC
     Route: 041
     Dates: start: 201801, end: 201806
  8. FLUOROURACILE ACCORD [Suspect]
     Active Substance: FLUOROURACIL
     Indication: NEOPLASM PROGRESSION
     Dosage: 4080 MG, CYCLIC
     Route: 041
     Dates: start: 20200831, end: 20200831
  9. DOCETAXEL TEVA [Suspect]
     Active Substance: DOCETAXEL
     Indication: NEOPLASM PROGRESSION
     Dosage: 100 MG, CYCLIC
     Route: 041
     Dates: start: 20200831, end: 20200831

REACTIONS (1)
  - Cardiac arrest [Fatal]

NARRATIVE: CASE EVENT DATE: 20200904
